FAERS Safety Report 7171925-1 (Version None)
Quarter: 2010Q4

REPORT INFORMATION
  Report Type: 
  Country: None (occurrence: None)
  Receive Date: 20101217
  Receipt Date: 20101209
  Transmission Date: 20110411
  Serious: Yes (Hospitalization)
  Sender: FDA-Public Use
  Company Number: US-MERCK-1012USA01915

PATIENT
  Age: 66 Year
  Sex: Female

DRUGS (3)
  1. FOSAMAX [Suspect]
     Indication: OSTEOPOROSIS PROPHYLAXIS
     Route: 048
     Dates: start: 19940101, end: 20060101
  2. FOSAMAX [Suspect]
     Route: 048
     Dates: start: 20080101, end: 20100315
  3. VITAMIN D (UNSPECIFIED) [Concomitant]
     Route: 065

REACTIONS (6)
  - BONE DISORDER [None]
  - DENTAL CARIES [None]
  - FALL [None]
  - FEMUR FRACTURE [None]
  - GLOSSITIS [None]
  - TOOTH DISORDER [None]
